FAERS Safety Report 21920420 (Version 1)
Quarter: 2023Q1

REPORT INFORMATION
  Report Type: Spontaneous
  Country: AT (occurrence: AT)
  Receive Date: 20230127
  Receipt Date: 20230127
  Transmission Date: 20230417
  Serious: Yes (Other)
  Sender: FDA-Public Use
  Company Number: None

PATIENT
  Age: 31 Year
  Sex: Female

DRUGS (1)
  1. GADOBUTROL [Suspect]
     Active Substance: GADOBUTROL
     Indication: Magnetic resonance imaging
     Dosage: ACCORDING TO SUMMARY OF PRODUCT CHARACTERISTICS
     Dates: start: 20220617, end: 20220617

REACTIONS (6)
  - Altered state of consciousness [Unknown]
  - Sensation of foreign body [Unknown]
  - Type I hypersensitivity [Unknown]
  - Flushing [Unknown]
  - Nausea [Unknown]
  - Dizziness [Unknown]

NARRATIVE: CASE EVENT DATE: 20220617
